FAERS Safety Report 13188813 (Version 1)
Quarter: 2017Q1

REPORT INFORMATION
  Report Type: Spontaneous
  Country: US (occurrence: US)
  Receive Date: 20170205
  Receipt Date: 20170205
  Transmission Date: 20170428
  Serious: Yes (Other)
  Sender: FDA-Public Use
  Company Number: None

PATIENT
  Age: 51 Year
  Sex: Female
  Weight: 53.55 kg

DRUGS (6)
  1. CALCIUNM [Concomitant]
  2. MULTIVITAMIN [Concomitant]
     Active Substance: VITAMINS
  3. PROBIOTIC [Concomitant]
     Active Substance: PROBIOTICS NOS
  4. BELSOMRA [Suspect]
     Active Substance: SUVOREXANT
     Indication: INSOMNIA
     Dates: start: 20170204, end: 20170205
  5. VITAMIN B12 [Concomitant]
     Active Substance: CYANOCOBALAMIN
  6. PERCOCET 10/325 [Concomitant]

REACTIONS (2)
  - Nightmare [None]
  - Insomnia [None]

NARRATIVE: CASE EVENT DATE: 20170205
